FAERS Safety Report 9665736 (Version 32)
Quarter: 2018Q3

REPORT INFORMATION
  Report Type: Report from Study
  Country: CA (occurrence: CA)
  Receive Date: 20131104
  Receipt Date: 20180903
  Transmission Date: 20181010
  Serious: Yes (Hospitalization, Other)
  Sender: FDA-Public Use
  Company Number: PHHY2012CA032089

PATIENT
  Age: 80 Year
  Sex: Male

DRUGS (14)
  1. SANDOSTATIN LAR DEPOT [Suspect]
     Active Substance: OCTREOTIDE ACETATE
     Dosage: 20 MG, TIW (EVERY 3 WEEKS)
     Route: 030
     Dates: start: 20140117, end: 20160707
  2. EURO FOLIC [Concomitant]
     Active Substance: FOLIC ACID
     Indication: PRODUCT USED FOR UNKNOWN INDICATION
     Route: 065
  3. CLAVIX [Concomitant]
     Indication: PRODUCT USED FOR UNKNOWN INDICATION
     Route: 065
  4. FLOMAX [Concomitant]
     Active Substance: TAMSULOSIN HYDROCHLORIDE
     Indication: PRODUCT USED FOR UNKNOWN INDICATION
     Route: 065
  5. SANDOSTATIN LAR DEPOT [Suspect]
     Active Substance: OCTREOTIDE ACETATE
     Indication: PANCREATIC CARCINOMA
     Dosage: 20 MG, QMO ( EVERY 4 WEEKS)
     Route: 030
     Dates: start: 20110309, end: 20131227
  6. SANDOSTATIN LAR DEPOT [Suspect]
     Active Substance: OCTREOTIDE ACETATE
     Dosage: 20 MG, QMO (EVERY 4 WEEKS)
     Route: 030
     Dates: start: 20160808
  7. PANTOPRAZOL RANBAXY [Concomitant]
     Indication: PRODUCT USED FOR UNKNOWN INDICATION
     Route: 065
  8. COVERSYL [Concomitant]
     Active Substance: PERINDOPRIL
     Indication: PRODUCT USED FOR UNKNOWN INDICATION
     Route: 048
  9. APO DILTIAZ [Concomitant]
     Indication: PRODUCT USED FOR UNKNOWN INDICATION
     Route: 065
  10. ATORVASTATIN TEVA [Concomitant]
     Active Substance: ATORVASTATIN
     Indication: PRODUCT USED FOR UNKNOWN INDICATION
     Route: 065
  11. SANDOSTATIN LAR DEPOT [Suspect]
     Active Substance: OCTREOTIDE ACETATE
     Dosage: 20 MG, QMO (EVERY 4 WEEKS)
     Route: 030
     Dates: start: 20180605
  12. K?DUR [Concomitant]
     Active Substance: POTASSIUM CHLORIDE
     Indication: PRODUCT USED FOR UNKNOWN INDICATION
     Route: 065
  13. LYRICA [Concomitant]
     Active Substance: PREGABALIN
     Indication: PRODUCT USED FOR UNKNOWN INDICATION
     Route: 065
  14. ASA [Concomitant]
     Active Substance: ASPIRIN
     Indication: PRODUCT USED FOR UNKNOWN INDICATION
     Route: 065

REACTIONS (46)
  - Hyperhidrosis [Unknown]
  - Intestinal obstruction [Unknown]
  - Blood potassium decreased [Unknown]
  - Pneumonitis [Unknown]
  - Lung disorder [Unknown]
  - Dyspnoea [Unknown]
  - Blood pressure increased [Unknown]
  - Faeces discoloured [Unknown]
  - Vomiting [Unknown]
  - Pulmonary embolism [Unknown]
  - Diarrhoea [Recovered/Resolved]
  - Asthenia [Unknown]
  - Malaise [Unknown]
  - Hypoaesthesia [Unknown]
  - Gait disturbance [Unknown]
  - Renal impairment [Recovered/Resolved]
  - Decreased appetite [Unknown]
  - Faeces soft [Unknown]
  - Pneumonia [Unknown]
  - Diverticulitis [Unknown]
  - Blood pressure systolic increased [Unknown]
  - Gastrooesophageal reflux disease [Unknown]
  - Inappropriate schedule of drug administration [Unknown]
  - Muscle atrophy [Unknown]
  - Pain of skin [Recovered/Resolved]
  - Nausea [Unknown]
  - Gastrointestinal inflammation [Unknown]
  - Weight decreased [Unknown]
  - Diabetes mellitus [Unknown]
  - Tongue discolouration [Unknown]
  - Diarrhoea [Unknown]
  - Pruritus [Unknown]
  - Constipation [Unknown]
  - Muscular weakness [Unknown]
  - Abdominal pain upper [Unknown]
  - Blood magnesium decreased [Unknown]
  - Device leakage [Unknown]
  - Heart rate decreased [Unknown]
  - Steatorrhoea [Unknown]
  - Cerebrovascular accident [Unknown]
  - Gastrointestinal bacterial infection [Recovered/Resolved]
  - Cerebral thrombosis [Recovered/Resolved]
  - Skin mass [Unknown]
  - Blood iron decreased [Unknown]
  - Frequent bowel movements [Unknown]
  - Abdominal pain [Unknown]

NARRATIVE: CASE EVENT DATE: 2014
